FAERS Safety Report 6407587-8 (Version None)
Quarter: 2009Q4

REPORT INFORMATION
  Report Type: 
  Country: None (occurrence: None)
  Receive Date: 20091020
  Receipt Date: 20091008
  Transmission Date: 20100525
  Serious: Yes (Hospitalization)
  Sender: FDA-Public Use
  Company Number: FR-GENENTECH-288908

PATIENT
  Sex: Female
  Weight: 25 kg

DRUGS (10)
  1. BEVACIZUMAB [Suspect]
     Indication: SARCOMA
     Dosage: 200 MG, Q21D
     Route: 042
     Dates: start: 20090605
  2. DACTINOMYCIN [Suspect]
     Indication: SARCOMA
     Dosage: 1500 A?G, Q21D
     Route: 042
     Dates: start: 20090605
  3. DOXORUBICIN HCL [Suspect]
     Indication: SARCOMA
     Dosage: 30.4 MG, 2X PER 21D
     Route: 042
     Dates: start: 20090605
  4. ISOPHOSPHAMIDE [Suspect]
     Indication: SARCOMA
     Dosage: 3 G, 2X PER 21D
     Route: 042
     Dates: start: 20090605
  5. VINCRISTINE [Suspect]
     Indication: SARCOMA
     Dosage: 1.50 MG, 3X PER 21D
     Route: 042
     Dates: start: 20090605
  6. MOPRAL [Concomitant]
     Indication: DRUG USE FOR UNKNOWN INDICATION
     Dosage: UNK
     Dates: start: 20090615
  7. BACTRIM [Concomitant]
     Indication: DRUG USE FOR UNKNOWN INDICATION
     Dosage: UNK
     Dates: start: 20090605
  8. TRIFLUCAN [Concomitant]
     Indication: DRUG USE FOR UNKNOWN INDICATION
     Dosage: UNK
     Dates: start: 20090804, end: 20090824
  9. ATARAX [Concomitant]
     Indication: DRUG USE FOR UNKNOWN INDICATION
     Dosage: UNK
     Dates: start: 20090605
  10. PARACETAMOL [Concomitant]
     Indication: DRUG USE FOR UNKNOWN INDICATION
     Dosage: UNK
     Dates: start: 20090605

REACTIONS (2)
  - CARDIAC DISORDER [None]
  - FEBRILE BONE MARROW APLASIA [None]
